FAERS Safety Report 21064323 (Version 1)
Quarter: 2022Q3

REPORT INFORMATION
  Report Type: Spontaneous
  Country: CN (occurrence: CN)
  Receive Date: 20220711
  Receipt Date: 20220711
  Transmission Date: 20221026
  Serious: Yes (Hospitalization, Other)
  Sender: FDA-Public Use
  Company Number: None

PATIENT
  Age: 60 Year
  Sex: Male
  Weight: 80 kg

DRUGS (8)
  1. CYCLOPHOSPHAMIDE [Suspect]
     Active Substance: CYCLOPHOSPHAMIDE
     Indication: Lymphoma
     Dosage: 1200.000000MG ONCE DAILY, D1 Q21D, CYCLOPHOSPHAMIDE DILUTED WITH 0.9% SODIUM CHLORIDE
     Route: 041
     Dates: start: 20220618, end: 20220618
  2. SODIUM CHLORIDE [Suspect]
     Active Substance: SODIUM CHLORIDE
     Indication: Medication dilution
     Dosage: 100 ML, QD,  CYCLOPHOSPHAMIDE DILUTED WITH 0.9% SODIUM CHLORIDE
     Route: 041
     Dates: start: 20220618, end: 20220618
  3. SODIUM CHLORIDE [Suspect]
     Active Substance: SODIUM CHLORIDE
     Dosage: 20 UNK, VINCRISTINE SULFATE DILUTED WITH 0.9% SODIUM CHLORIDE
     Route: 041
     Dates: start: 20220618, end: 20220618
  4. DEXTROSE MONOHYDRATE [Suspect]
     Active Substance: DEXTROSE MONOHYDRATE
     Indication: Medication dilution
     Dosage: 100 ML, QD, PIRARUBICIN HYDROCHLORIDE DILUTED WITH 5% GLUCOSE
     Route: 041
     Dates: start: 20220618, end: 20220618
  5. PIRARUBICIN HYDROCHLORIDE [Suspect]
     Active Substance: PIRARUBICIN HYDROCHLORIDE
     Indication: Lymphoma
     Dosage: 90.000000MG ONCE DAILY, D1 Q21D, PIRARUBICIN HYDROCHLORIDE DILUTED WITH 5% GLUCOSE, POWDER FOR INJEC
     Route: 041
     Dates: start: 20220618, end: 20220618
  6. VINCRISTINE SULFATE [Suspect]
     Active Substance: VINCRISTINE SULFATE
     Indication: Lymphoma
     Dosage: 2.000000MG ONCE DAILY, VINCRISTINE SULFATE DILUTED WITH 0.9% SODIUM CHLORIDE, POWDER FOR INJECTION
     Route: 041
     Dates: start: 20220618, end: 20220618
  7. GRANULOCYTE COLONY-STIMULATING FACTOR NOS [Concomitant]
     Active Substance: GRANULOCYTE COLONY-STIMULATING FACTOR NOS
     Indication: Prophylaxis
     Dosage: 6 MG, QD
     Route: 058
     Dates: start: 202206
  8. Sheng xue bao [Concomitant]
     Indication: Prophylaxis
     Dosage: 15 ML, TID, MIXTURE
     Route: 065
     Dates: start: 202206

REACTIONS (3)
  - Granulocytopenia [Recovered/Resolved]
  - Myelosuppression [Unknown]
  - Neutropenia [Unknown]

NARRATIVE: CASE EVENT DATE: 20220628
